FAERS Safety Report 24786715 (Version 1)
Quarter: 2024Q4

REPORT INFORMATION
  Report Type: Spontaneous
  Country: CN (occurrence: CN)
  Receive Date: 20241230
  Receipt Date: 20241230
  Transmission Date: 20250115
  Serious: Yes (Hospitalization, Other)
  Sender: AMGEN
  Company Number: CN-KYOWAKIRIN-2024KK028462

PATIENT
  Age: 58 Year
  Sex: Male

DRUGS (4)
  1. EPOETIN ALFA [Suspect]
     Active Substance: ERYTHROPOIETIN
     Indication: Chronic kidney disease
     Dosage: 5000 IU TWICE A WEEK
     Route: 058
     Dates: start: 202107
  2. EPOETIN ALFA [Suspect]
     Active Substance: ERYTHROPOIETIN
     Dosage: (6000 IU) ONCE A WEEK
     Route: 042
     Dates: start: 202111
  3. EPOETIN ALFA [Suspect]
     Active Substance: ERYTHROPOIETIN
     Dosage: 6000 IU THRICE A WEEK
     Route: 042
     Dates: start: 202205
  4. EPOETIN ALFA [Suspect]
     Active Substance: ERYTHROPOIETIN
     Dosage: 6000 IU THRICE A WEEK
     Route: 058
     Dates: start: 20220521

REACTIONS (1)
  - Aplasia pure red cell [Unknown]
